FAERS Safety Report 5454565-1 (Version None)
Quarter: 2007Q3

REPORT INFORMATION
  Report Type: 
  Country: None (occurrence: None)
  Receive Date: 20070917
  Receipt Date: 20060911
  Transmission Date: 20080115
  Serious: Yes (Other)
  Sender: FDA-Public Use
  Company Number: US-ASTRAZENECA-2006UW17795

PATIENT
  Age: 60 Year
  Sex: Male

DRUGS (4)
  1. SEROQUEL [Suspect]
     Dosage: 150 MG DIVIDED DAILY
     Route: 048
  2. SEROQUEL [Suspect]
     Dosage: 150 MG DIVIDED DAILY
     Route: 048
  3. TRAZODONE HCL [Concomitant]
  4. DEMENTIA MEDICATION [Concomitant]
     Indication: DEMENTIA

REACTIONS (1)
  - DYSKINESIA [None]
